FAERS Safety Report 23557089 (Version 1)
Quarter: 2024Q1

REPORT INFORMATION
  Report Type: Report from Study
  Country: CO (occurrence: CO)
  Receive Date: 20240223
  Receipt Date: 20240223
  Transmission Date: 20240410
  Serious: Yes (Hospitalization)
  Sender: FDA-Public Use
  Company Number: CO-JNJFOC-20240249257

PATIENT
  Age: 47 Year
  Sex: Female
  Weight: 68 kg

DRUGS (1)
  1. DARZALEX [Suspect]
     Active Substance: DARATUMUMAB
     Indication: Plasma cell myeloma
     Route: 042
     Dates: start: 20231017

REACTIONS (3)
  - Hypokalaemia [Recovering/Resolving]
  - Thrombocytopenia [Recovering/Resolving]
  - Generalised oedema [Recovering/Resolving]
